FAERS Safety Report 8413915-4 (Version None)
Quarter: 2012Q2

REPORT INFORMATION
  Report Type: 
  Country: None (occurrence: None)
  Receive Date: 20120605
  Receipt Date: 20120527
  Transmission Date: 20120825
  Serious: Yes (Hospitalization, Other)
  Sender: FDA-Public Use
  Company Number: US-ABBOTT-12P-163-0936990-00

PATIENT
  Age: 75 Year
  Sex: Female

DRUGS (9)
  1. HUMIRA [Suspect]
     Indication: CROHN'S DISEASE
     Dates: start: 20100101, end: 20110101
  2. LISINOPRIL [Concomitant]
     Indication: HYPERTENSION
  3. UNKNOWN MEDICATION [Concomitant]
     Indication: HYPERTENSION
  4. ULTRAM [Concomitant]
     Indication: PAIN
  5. HYDROCHLOROTHIAZIDE [Concomitant]
     Indication: PRODUCT USED FOR UNKNOWN INDICATION
  6. LISINOPRIL [Concomitant]
  7. LEVOTHYROXINE SODIUM [Concomitant]
     Indication: THYROID DISORDER
  8. HUMIRA [Suspect]
     Dosage: LOADING DOSE
     Dates: start: 20120526
  9. PRILOSEC [Concomitant]
     Indication: PRODUCT USED FOR UNKNOWN INDICATION
     Dosage: DAILY

REACTIONS (15)
  - BILIARY TRACT DISORDER [None]
  - MALAISE [None]
  - ABDOMINAL PAIN [None]
  - PROCEDURAL NAUSEA [None]
  - CROHN'S DISEASE [None]
  - FALL [None]
  - DEEP VEIN THROMBOSIS [None]
  - LIVER INJURY [None]
  - FISTULA DISCHARGE [None]
  - GALLBLADDER OPERATION [None]
  - ARTHRALGIA [None]
  - DRUG INEFFECTIVE [None]
  - DIARRHOEA [None]
  - FEMALE GENITAL TRACT FISTULA [None]
  - DEHYDRATION [None]
